FAERS Safety Report 6714435-5 (Version None)
Quarter: 2010Q2

REPORT INFORMATION
  Report Type: 
  Country: None (occurrence: None)
  Receive Date: 20100506
  Receipt Date: 20100426
  Transmission Date: 20101027
  Serious: Yes (Hospitalization, Other)
  Sender: FDA-Public Use
  Company Number: CH-ABBOTT-09P-151-0607349-00

PATIENT
  Sex: Female

DRUGS (21)
  1. HUMIRA [Suspect]
     Indication: RHEUMATOID ARTHRITIS
     Dates: start: 20081112, end: 20091117
  2. METHOTREXATE [Suspect]
     Indication: RHEUMATOID ARTHRITIS
     Dates: start: 20080914, end: 20091117
  3. CONDROSULF [Concomitant]
     Indication: DRUG USE FOR UNKNOWN INDICATION
     Route: 048
  4. DOXIUM [Concomitant]
     Indication: DRUG USE FOR UNKNOWN INDICATION
     Route: 048
  5. OMEPRAZOLE [Concomitant]
     Indication: DRUG USE FOR UNKNOWN INDICATION
     Route: 048
  6. KEPPRA [Concomitant]
     Indication: DRUG USE FOR UNKNOWN INDICATION
     Route: 048
  7. DEPAKINE CHRONO [Concomitant]
     Indication: DRUG USE FOR UNKNOWN INDICATION
     Route: 048
     Dates: end: 20100321
  8. DEPAKINE CHRONO [Concomitant]
     Dates: start: 20100322, end: 20100331
  9. DEPAKINE CHRONO [Concomitant]
     Dates: start: 20100401, end: 20100410
  10. BIOTINE [Concomitant]
     Indication: DRUG USE FOR UNKNOWN INDICATION
     Route: 048
  11. DAFALGAN [Concomitant]
     Indication: PAIN
     Dosage: 1 G - 4 TIMES DAILY IN RESERVE
     Route: 048
  12. LEVOTHYROXINE SODIUM [Concomitant]
     Indication: DRUG USE FOR UNKNOWN INDICATION
     Route: 048
  13. LEVOTHYROXINE SODIUM [Concomitant]
     Route: 048
  14. CALCIMAGON-D3 [Concomitant]
     Indication: DRUG USE FOR UNKNOWN INDICATION
  15. LORAZEPAM [Concomitant]
     Indication: SIMPLE PARTIAL SEIZURES
     Dosage: 1 MG - 2 TIMES DAILY IN RESERVE
  16. PREDNISONE [Concomitant]
     Indication: DRUG USE FOR UNKNOWN INDICATION
     Route: 048
     Dates: end: 20100401
  17. PREDNISONE [Concomitant]
     Route: 048
     Dates: start: 20100402, end: 20100423
  18. PREDNISONE [Concomitant]
     Route: 048
     Dates: start: 20100424
  19. PREDNISONE [Concomitant]
  20. ARAVA [Concomitant]
     Indication: DRUG USE FOR UNKNOWN INDICATION
     Route: 048
  21. IMOVANE [Concomitant]
     Indication: INSOMNIA
     Route: 048

REACTIONS (31)
  - ANOSMIA [None]
  - DYSTONIA [None]
  - EPILEPSY [None]
  - GENITAL HERPES [None]
  - GRANULOMA [None]
  - HEADACHE [None]
  - HYPERTHYROIDISM [None]
  - HYPOAESTHESIA [None]
  - INFLAMMATION [None]
  - LUNG NEOPLASM [None]
  - MENINGITIS [None]
  - MENINGITIS LEPTOSPIRAL [None]
  - MUSCULAR WEAKNESS [None]
  - NECROSIS [None]
  - NERVOUS SYSTEM DISORDER [None]
  - ORAL HERPES [None]
  - PARAESTHESIA [None]
  - PARTIAL SEIZURES WITH SECONDARY GENERALISATION [None]
  - PHOTOPHOBIA [None]
  - POSTICTAL STATE [None]
  - RHEUMATOID ARTHRITIS [None]
  - ROTATOR CUFF SYNDROME [None]
  - SENSORY DISTURBANCE [None]
  - SIMPLE PARTIAL SEIZURES [None]
  - TACHYCARDIA [None]
  - TONGUE INJURY [None]
  - TONIC CLONIC MOVEMENTS [None]
  - TREMOR [None]
  - VISION BLURRED [None]
  - VISUAL FIELD DEFECT [None]
  - WEIGHT INCREASED [None]
